FAERS Safety Report 5455743-8 (Version None)
Quarter: 2007Q3

REPORT INFORMATION
  Report Type: 
  Country: None (occurrence: None)
  Receive Date: 20070917
  Receipt Date: 20070917
  Transmission Date: 20080115
  Serious: Yes (Death)
  Sender: FDA-Public Use
  Company Number: None

PATIENT
  Age: 68 Year
  Sex: Female
  Weight: 75 kg

DRUGS (2)
  1. LONAFARNIB [Suspect]
     Indication: HEPATIC NEOPLASM MALIGNANT
     Dosage: 150MG PO BID
     Route: 048
     Dates: start: 20070905, end: 20070911
  2. DOCETAXEL [Suspect]
     Dosage: 36MG/M2 IV ONCE A WEEK
     Route: 042
     Dates: start: 20070904

REACTIONS (1)
  - MEDICATION ERROR [None]
